FAERS Safety Report 9895992 (Version 2)
Quarter: 2014Q1

REPORT INFORMATION
  Report Type: Spontaneous
  Country: US (occurrence: US)
  Receive Date: 20140213
  Receipt Date: 20140213
  Transmission Date: 20141002
  Serious: No
  Sender: FDA-Public Use
  Company Number: US-BRISTOL-MYERS SQUIBB COMPANY-18767129

PATIENT
  Age: 78 Year
  Sex: Female
  Weight: 64.4 kg

DRUGS (3)
  1. ORENCIA FOR INJ [Suspect]
     Indication: RHEUMATOID ARTHRITIS
     Dosage: LAST INF:02APR2013?DOSE:3 VIALS?1DF:3 DOSES 2WEEKS APART, AND 3ONE,THEN ONCE A MONTH
     Route: 042
     Dates: start: 20130319
  2. CLINDAMYCIN [Concomitant]
  3. VICODIN [Concomitant]
     Dosage: 1DF:7.5 UNITS NOS

REACTIONS (3)
  - Tooth abscess [Unknown]
  - Sensitivity of teeth [Unknown]
  - Impaired healing [Unknown]
